FAERS Safety Report 17202168 (Version 1)
Quarter: 2019Q4

REPORT INFORMATION
  Report Type: Spontaneous
  Country: US (occurrence: US)
  Receive Date: 20191226
  Receipt Date: 20191226
  Transmission Date: 20200122
  Serious: Yes (Hospitalization)
  Sender: FDA-Public Use
  Company Number: US-ASTRAZENECA-2019SF86837

PATIENT
  Sex: Male
  Weight: 11.8 kg

DRUGS (1)
  1. SYNAGIS [Suspect]
     Active Substance: PALIVIZUMAB
     Indication: PULMONARY DYSMATURITY SYNDROME
     Route: 030

REACTIONS (2)
  - Viral infection [Unknown]
  - Asthma [Unknown]
